FAERS Safety Report 7206885-8 (Version None)
Quarter: 2010Q4

REPORT INFORMATION
  Report Type: 
  Country: None (occurrence: None)
  Receive Date: 20101230
  Receipt Date: 20101230
  Transmission Date: 20110411
  Serious: Yes (Hospitalization)
  Sender: FDA-Public Use
  Company Number: None

PATIENT
  Age: 63 Year
  Sex: Female
  Weight: 58 kg

DRUGS (1)
  1. ANASTROZOLE (ARIMIDEX) [Suspect]
     Indication: BREAST CANCER
     Dosage: 1MG ONCE A DAY ORAL (047)
     Route: 048
     Dates: start: 20100804, end: 20101201

REACTIONS (8)
  - BREAST CANCER METASTATIC [None]
  - DECREASED APPETITE [None]
  - DEHYDRATION [None]
  - GENERAL PHYSICAL HEALTH DETERIORATION [None]
  - MALIGNANT ASCITES [None]
  - MALIGNANT NEOPLASM PROGRESSION [None]
  - PAIN [None]
  - WEIGHT DECREASED [None]
